FAERS Safety Report 7608658-0 (Version None)
Quarter: 2011Q3

REPORT INFORMATION
  Report Type: 
  Country: None (occurrence: None)
  Receive Date: 20110714
  Receipt Date: 20110701
  Transmission Date: 20111222
  Serious: No
  Sender: FDA-Public Use
  Company Number: US-B.I. PHARMACEUTICALS,INC./RIDGEFIELD-2011-BP-17066BP

PATIENT
  Age: 83 Year
  Sex: Female

DRUGS (4)
  1. DILTIAZEM [Concomitant]
     Indication: CARDIAC DISORDER
     Dosage: 60 MG
     Route: 048
     Dates: start: 20110328
  2. PRADAXA [Suspect]
     Indication: ATRIAL FIBRILLATION
     Dosage: 150 MG
     Route: 048
     Dates: start: 20110328
  3. LASIX [Concomitant]
     Route: 048
     Dates: start: 20110428
  4. LASIX [Concomitant]
     Indication: CARDIAC DISORDER
     Route: 048
     Dates: start: 20110428

REACTIONS (6)
  - FLATULENCE [None]
  - ABDOMINAL DISCOMFORT [None]
  - OCULAR HYPERAEMIA [None]
  - EXCESSIVE EYE BLINKING [None]
  - DYSPEPSIA [None]
  - DYSPHAGIA [None]
